FAERS Safety Report 7051139-6 (Version None)
Quarter: 2010Q4

REPORT INFORMATION
  Report Type: 
  Country: None (occurrence: None)
  Receive Date: 20101019
  Receipt Date: 20101012
  Transmission Date: 20110411
  Serious: Yes (Hospitalization)
  Sender: FDA-Public Use
  Company Number: JP-JNJFOC-20101003951

PATIENT
  Age: 82 Year
  Sex: Female

DRUGS (1)
  1. FINIBAX [Suspect]
     Indication: PNEUMONIA ASPIRATION
     Route: 065

REACTIONS (1)
  - ACUTE HEPATIC FAILURE [None]
